FAERS Safety Report 13118512 (Version 1)
Quarter: 2017Q1

REPORT INFORMATION
  Report Type: Report from Study
  Country: US (occurrence: US)
  Receive Date: 20170116
  Receipt Date: 20170116
  Transmission Date: 20170428
  Serious: Yes (Hospitalization)
  Sender: FDA-Public Use
  Company Number: US-SA-2017SA004398

PATIENT
  Age: 61 Year
  Sex: Female

DRUGS (17)
  1. DOCETAXEL. [Suspect]
     Active Substance: DOCETAXEL
     Indication: HER-2 POSITIVE BREAST CANCER
     Dosage: FREQUENCY: 1 EVERY 3 WK
     Route: 042
     Dates: start: 20160223, end: 20160223
  2. DOCETAXEL. [Suspect]
     Active Substance: DOCETAXEL
     Indication: HER-2 POSITIVE BREAST CANCER
     Dosage: FREQUENCY: 1 IN 3 WK
     Route: 042
     Dates: start: 2016, end: 20160504
  3. PERTUZUMAB [Suspect]
     Active Substance: PERTUZUMAB
     Indication: HER-2 POSITIVE BREAST CANCER
     Dosage: FORM: INFUSION SOLUTION
     Route: 041
     Dates: start: 20160107, end: 20160107
  4. DOCETAXEL. [Suspect]
     Active Substance: DOCETAXEL
     Indication: HER-2 POSITIVE BREAST CANCER
     Dosage: FREQUENCY ^ 1 IN 3 WK
     Route: 042
     Dates: start: 20160107, end: 20160107
  5. TRASTUZUMAB [Suspect]
     Active Substance: TRASTUZUMAB
     Indication: HER-2 POSITIVE BREAST CANCER
     Dosage: FORM:: INFUSION SOLUTION
     Route: 041
     Dates: start: 20160107, end: 20160107
  6. TRASTUZUMAB [Suspect]
     Active Substance: TRASTUZUMAB
     Indication: HER-2 POSITIVE BREAST CANCER
     Dosage: FREQUENCY: 1 IN 3 WK?FORM: INFUSION SOL
     Route: 041
     Dates: start: 20160223, end: 20160223
  7. PERTUZUMAB [Suspect]
     Active Substance: PERTUZUMAB
     Indication: HER-2 POSITIVE BREAST CANCER
     Dosage: FORM: INFUSION SOLUTION
     Route: 041
     Dates: start: 20160107, end: 20160107
  8. TRASTUZUMAB [Suspect]
     Active Substance: TRASTUZUMAB
     Indication: HER-2 POSITIVE BREAST CANCER
     Dosage: FREQUENCY: 1 IN 3 WK?FORM: INFUSION SOL
     Route: 041
     Dates: start: 20160123
  9. CARBOPLATIN. [Suspect]
     Active Substance: CARBOPLATIN
     Indication: HER-2 POSITIVE BREAST CANCER
     Dosage: FREQUENCY: 1 IN 3 WK?DOSE: 6 MG/ML/MIN
     Route: 042
     Dates: start: 20160107, end: 20160107
  10. PERTUZUMAB [Suspect]
     Active Substance: PERTUZUMAB
     Indication: HER-2 POSITIVE BREAST CANCER
     Dosage: FREQUENCY : 1 IN 3 WK
     Route: 041
     Dates: start: 20160123
  11. DOCETAXEL. [Suspect]
     Active Substance: DOCETAXEL
     Indication: HER-2 POSITIVE BREAST CANCER
     Dosage: FREQUENCY: 1 EVERY 3 WK
     Route: 042
     Dates: start: 20160314
  12. TRASTUZUMAB [Suspect]
     Active Substance: TRASTUZUMAB
     Indication: HER-2 POSITIVE BREAST CANCER
     Dosage: FORM:: INFUSION SOLUTION
     Route: 041
     Dates: start: 20160107, end: 20160107
  13. CARBOPLATIN. [Suspect]
     Active Substance: CARBOPLATIN
     Indication: HER-2 POSITIVE BREAST CANCER
     Dosage: FREQUENCY: 1 IN 3 WK
     Route: 042
     Dates: start: 20160223, end: 20160223
  14. PERTUZUMAB [Suspect]
     Active Substance: PERTUZUMAB
     Indication: HER-2 POSITIVE BREAST CANCER
     Dosage: FREQUENCY: 1 IN 3 WK
     Route: 041
     Dates: end: 201605
  15. CARBOPLATIN. [Suspect]
     Active Substance: CARBOPLATIN
     Indication: HER-2 POSITIVE BREAST CANCER
     Dosage: DOSE: AUC=4?FREQUENCY: 1 3 WK
     Route: 042
     Dates: start: 20160314
  16. TRASTUZUMAB [Suspect]
     Active Substance: TRASTUZUMAB
     Indication: HER-2 POSITIVE BREAST CANCER
     Dosage: FREQUENCY: 1 IN 3 WK?FORM: INFUSION SOL
     Route: 041
     Dates: end: 20160504
  17. CARBOPLATIN. [Suspect]
     Active Substance: CARBOPLATIN
     Indication: HER-2 POSITIVE BREAST CANCER
     Dosage: FREQUENCY: 1 IN 3 WK
     Route: 042
     Dates: start: 2016, end: 20160504

REACTIONS (8)
  - Nausea [Recovered/Resolved]
  - Dehydration [Recovered/Resolved]
  - Gastritis [Recovered/Resolved]
  - Urinary tract infection [Recovered/Resolved]
  - Anaemia [Recovered/Resolved]
  - Mucosal infection [Recovered/Resolved]
  - Colitis [Recovered/Resolved]
  - Hypocalcaemia [Recovered/Resolved]

NARRATIVE: CASE EVENT DATE: 20160301
